FAERS Safety Report 5194411-7 (Version None)
Quarter: 2006Q4

REPORT INFORMATION
  Report Type: 
  Country: None (occurrence: None)
  Receive Date: 20061222
  Receipt Date: 20061207
  Transmission Date: 20070319
  Serious: Yes (Hospitalization, Other)
  Sender: FDA-Public Use
  Company Number: 220004N06USA

PATIENT
  Age: 11 Year
  Sex: Female

DRUGS (4)
  1. SAIZEN [Suspect]
     Indication: GROWTH HORMONE DEFICIENCY
     Dosage: SEE IMAGE
     Route: 058
     Dates: end: 20061205
  2. SAIZEN [Suspect]
     Indication: GROWTH HORMONE DEFICIENCY
     Dosage: SEE IMAGE
     Route: 058
     Dates: start: 20050701
  3. HYDROCORTISONE /00028601/ [Concomitant]
  4. ATOMOXETINE HYDROCHLORIDE [Concomitant]

REACTIONS (2)
  - CRANIOPHARYNGIOMA [None]
  - NEOPLASM RECURRENCE [None]
